FAERS Safety Report 5261886-4 (Version None)
Quarter: 2007Q1

REPORT INFORMATION
  Report Type: 
  Country: None (occurrence: None)
  Receive Date: 20070310
  Receipt Date: 20060602
  Transmission Date: 20070707
  Serious: No
  Sender: FDA-Public Use
  Company Number: 2006UW10851

PATIENT
  Age: 60 Year
  Sex: Female
  Weight: 113.6 kg

DRUGS (6)
  1. SEROQUEL [Suspect]
     Indication: PSYCHOTIC DISORDER
     Route: 048
     Dates: start: 20030501, end: 20031101
  2. SEROQUEL [Suspect]
     Route: 048
     Dates: start: 20040301, end: 20050301
  3. ZYPREXA [Suspect]
     Dates: start: 20031101, end: 20040301
  4. GEODON [Concomitant]
  5. NAVANE [Concomitant]
  6. TRILAFON [Concomitant]

REACTIONS (5)
  - BLOOD CHOLESTEROL INCREASED [None]
  - BLOOD TRIGLYCERIDES INCREASED [None]
  - DIABETES MELLITUS [None]
  - HYPERLIPIDAEMIA [None]
  - INJURY [None]
